FAERS Safety Report 9150636 (Version 1)
Quarter: 2013Q1

REPORT INFORMATION
  Report Type: Spontaneous
  Country: BR (occurrence: BR)
  Receive Date: 20130308
  Receipt Date: 20130308
  Transmission Date: 20140127
  Serious: Yes (Death)
  Sender: FDA-Public Use
  Company Number: BR-ROCHE-1198823

PATIENT
  Sex: Female

DRUGS (3)
  1. PEGASYS [Suspect]
     Indication: HEPATITIS C
     Route: 065
  2. RIBAVIRIN [Interacting]
     Indication: HEPATITIS C
     Route: 065
  3. TELAPREVIR [Interacting]
     Indication: HEPATITIS C
     Route: 065

REACTIONS (2)
  - Hepatitis C [Fatal]
  - Drug interaction [Fatal]
